FAERS Safety Report 23163190 (Version 2)
Quarter: 2023Q4

REPORT INFORMATION
  Report Type: Spontaneous
  Country: AR (occurrence: AR)
  Receive Date: 20231109
  Receipt Date: 20231109
  Transmission Date: 20240110
  Serious: No
  Sender: FDA-Public Use
  Company Number: AR-PFIZER INC-PV202300177933

PATIENT
  Age: 8 Year
  Sex: Male

DRUGS (2)
  1. GENOTROPIN [Suspect]
     Active Substance: SOMATROPIN
     Indication: Short stature
     Dosage: 0.6 TO 1 MG, 6 TIMES PER WEEK
     Dates: start: 20210201
  2. GENOTROPIN [Suspect]
     Active Substance: SOMATROPIN
     Dosage: 1 MG, 6 TIMES PER WEEK

REACTIONS (1)
  - Needle issue [Not Recovered/Not Resolved]

NARRATIVE: CASE EVENT DATE: 20230101
